FAERS Safety Report 16776720 (Version 3)
Quarter: 2019Q4

REPORT INFORMATION
  Report Type: Spontaneous
  Country: US (occurrence: US)
  Receive Date: 20190905
  Receipt Date: 20191202
  Transmission Date: 20200122
  Serious: No
  Sender: FDA-Public Use
  Company Number: US-SA-2019SA245165

PATIENT
  Age: 13 Year
  Sex: Male
  Weight: 103.5 kg

DRUGS (2)
  1. DUPIXENT [Suspect]
     Active Substance: DUPILUMAB
     Dosage: 300 MG, QOW
     Dates: start: 201904
  2. DUPIXENT [Suspect]
     Active Substance: DUPILUMAB
     Dosage: 300 MG QOW
     Dates: start: 2019

REACTIONS (4)
  - Ocular hyperaemia [Recovered/Resolved]
  - Conjunctivitis [Recovered/Resolved]
  - Eye pruritus [Recovered/Resolved]
  - Periorbital discomfort [Recovered/Resolved]

NARRATIVE: CASE EVENT DATE: 2019
